FAERS Safety Report 4512376-5 (Version None)
Quarter: 2004Q4

REPORT INFORMATION
  Report Type: 
  Country: None (occurrence: None)
  Receive Date: 20041123
  Receipt Date: 20041105
  Transmission Date: 20050328
  Serious: Yes (Other)
  Sender: FDA-Public Use
  Company Number: ACO_0018_2004

PATIENT
  Age: 34 Year
  Sex: Male

DRUGS (9)
  1. TERNELIN [Suspect]
     Dosage: 3 MG QDAY PO
     Route: 048
     Dates: start: 19961201, end: 20040819
  2. FLUVOXAMINE MALEATE [Suspect]
     Indication: DEPRESSION
     Dosage: 150 MG QDAY PO
     Route: 048
     Dates: start: 20030301, end: 20040819
  3. LORAZEPAM [Concomitant]
  4. AMOXAN [Concomitant]
  5. ALLOPURINOL [Concomitant]
  6. LANSOPRAZOLE [Concomitant]
  7. MOSAPRIDE CITRATE [Concomitant]
  8. CALCITRIOL [Concomitant]
  9. CALCIUM CARBONATE [Concomitant]

REACTIONS (8)
  - BLOOD PRESSURE DECREASED [None]
  - BLOOD PRESSURE SYSTOLIC INCREASED [None]
  - DEHYDRATION [None]
  - DIALYSIS [None]
  - DIALYSIS DISEQUILIBRIUM SYNDROME [None]
  - DIZZINESS [None]
  - NAUSEA [None]
  - SOMNOLENCE [None]
